FAERS Safety Report 12220878 (Version 1)
Quarter: 2016Q1

REPORT INFORMATION
  Report Type: Spontaneous
  Country: US (occurrence: None)
  Receive Date: 20160329
  Receipt Date: 20160329
  Transmission Date: 20160526
  Serious: Yes (Disabling)
  Sender: FDA-Public Use
  Company Number: None

PATIENT
  Age: 49 Year
  Sex: Female
  Weight: 61.24 kg

DRUGS (5)
  1. BUPROPRION HCL XL 150MG MG GLOBAL PHARM [Suspect]
     Active Substance: BUPROPION HYDROCHLORIDE
     Indication: DEPRESSION
     Dosage: 14 TABLETS, IN THE MORNING, TAKEN BY MOUTH
     Route: 048
     Dates: start: 20160307, end: 20160328
  2. ALPRAZOLAM. [Concomitant]
     Active Substance: ALPRAZOLAM
  3. NATURE-THROID [Concomitant]
     Active Substance: THYROID, PORCINE
  4. TIZANIDINE. [Concomitant]
     Active Substance: TIZANIDINE
  5. VALACYCLOVIR [Concomitant]
     Active Substance: VALACYCLOVIR HYDROCHLORIDE

REACTIONS (3)
  - Depression [None]
  - Product substitution issue [None]
  - Drug ineffective [None]

NARRATIVE: CASE EVENT DATE: 20160307
